FAERS Safety Report 6600743-5 (Version None)
Quarter: 2010Q1

REPORT INFORMATION
  Report Type: 
  Country: None (occurrence: None)
  Receive Date: 20100223
  Receipt Date: 20100223
  Transmission Date: 20100710
  Serious: No
  Sender: FDA-Public Use
  Company Number: None

PATIENT
  Age: 69 Year
  Sex: Female
  Weight: 65.7716 kg

DRUGS (2)
  1. METOCLOPRAMIDE HCL [Suspect]
     Indication: GASTROOESOPHAGEAL REFLUX DISEASE
     Dosage: 10MG QID PO
     Route: 048
     Dates: start: 20090331, end: 20090413
  2. PANTOPRAZOLE SODIUM TABLET DR [Concomitant]

REACTIONS (11)
  - ANXIETY [None]
  - DYSKINESIA [None]
  - FATIGUE [None]
  - ORAL PAIN [None]
  - OROPHARYNGEAL PAIN [None]
  - SOMNOLENCE [None]
  - SWELLING [None]
  - TONGUE BITING [None]
  - TONGUE DISORDER [None]
  - TONSILLAR DISORDER [None]
  - VISUAL IMPAIRMENT [None]
